FAERS Safety Report 8936748 (Version 1)
Quarter: 2012Q4

REPORT INFORMATION
  Report Type: 
  Country: US (occurrence: US)
  Receive Date: 20121130
  Receipt Date: 20121130
  Transmission Date: 20130627
  Serious: Yes (Death)
  Sender: FDA-Public Use
  Company Number: US-ROCHE-1126194

PATIENT
  Sex: Female

DRUGS (6)
  1. AVASTIN [Suspect]
     Indication: BREAST CANCER FEMALE
     Route: 042
     Dates: start: 20050824, end: 20060623
  2. XELODA [Suspect]
     Indication: BREAST CANCER FEMALE
     Route: 065
  3. NAVELBINE [Concomitant]
     Route: 065
     Dates: start: 20060714
  4. ZOMETA [Concomitant]
  5. ARIMIDEX [Concomitant]
  6. ABRAXANE [Concomitant]

REACTIONS (6)
  - Disease progression [Unknown]
  - Tumour marker increased [Unknown]
  - Arthralgia [Unknown]
  - Spinal pain [Unknown]
  - Abdominal distension [Unknown]
  - Breast cancer metastatic [Fatal]
